FAERS Safety Report 8441132-0 (Version None)
Quarter: 2012Q2

REPORT INFORMATION
  Report Type: 
  Country: None (occurrence: None)
  Receive Date: 20120615
  Receipt Date: 20120612
  Transmission Date: 20120825
  Serious: Yes (Death, Life-Threatening, Hospitalization)
  Sender: FDA-Public Use
  Company Number: US-ELI_LILLY_AND_COMPANY-US201206004379

PATIENT
  Age: 88 Year
  Sex: Female

DRUGS (3)
  1. HUMALOG [Suspect]
     Indication: DIABETES MELLITUS
     Dosage: UNK, UNKNOWN
  2. HUMULIN R [Suspect]
     Indication: DIABETES MELLITUS
     Dosage: UNK, UNKNOWN
  3. HUMULIN N [Suspect]
     Indication: DIABETES MELLITUS
     Dosage: UNK, UNKNOWN

REACTIONS (10)
  - CORONARY ARTERY BYPASS [None]
  - PYREXIA [None]
  - SEPSIS [None]
  - COMA [None]
  - BLOOD GLUCOSE DECREASED [None]
  - FALL [None]
  - BLOOD GLUCOSE FLUCTUATION [None]
  - CEREBRAL HAEMORRHAGE [None]
  - TREMOR [None]
  - DIABETIC COMPLICATION [None]
